FAERS Safety Report 25807127 (Version 1)
Quarter: 2025Q3

REPORT INFORMATION
  Report Type: Spontaneous
  Country: US (occurrence: None)
  Receive Date: 20250915
  Receipt Date: 20250915
  Transmission Date: 20251021
  Serious: Yes (Death)
  Sender: FDA-CTU
  Company Number: None

PATIENT
  Age: 39 Year
  Sex: Male

DRUGS (1)
  1. TACROLIMUS [Suspect]
     Active Substance: TACROLIMUS

REACTIONS (4)
  - Encephalopathy [None]
  - Rhabdomyolysis [None]
  - Dependence on respirator [None]
  - Respiratory failure [None]

NARRATIVE: CASE EVENT DATE: 20250807
